FAERS Safety Report 5565125-6 (Version None)
Quarter: 2007Q4

REPORT INFORMATION
  Report Type: 
  Country: None (occurrence: None)
  Receive Date: 20071213
  Receipt Date: 20071121
  Transmission Date: 20080405
  Serious: Yes (Hospitalization, Other)
  Sender: FDA-Public Use
  Company Number: 2007SP023772

PATIENT
  Sex: Male

DRUGS (1)
  1. CORICIDIN [Suspect]
     Indication: DRUG ABUSE
     Dosage: 12 DF; PO
     Route: 048

REACTIONS (1)
  - INTENTIONAL OVERDOSE [None]
